FAERS Safety Report 15664832 (Version 2)
Quarter: 2019Q2

REPORT INFORMATION
  Report Type: Report from Study
  Country: JP (occurrence: JP)
  Receive Date: 20181128
  Receipt Date: 20190404
  Transmission Date: 20190711
  Serious: Yes (Death, Other)
  Sender: FDA-Public Use
  Company Number: JP-TAKEDA-2018TUS034040

PATIENT
  Age: 58 Year
  Sex: Female
  Weight: 45 kg

DRUGS (2)
  1. GEMCITABINE HYDROCHLORIDE. [Concomitant]
     Active Substance: GEMCITABINE HYDROCHLORIDE
     Indication: OVARIAN CANCER
     Dosage: UNK
     Route: 065
     Dates: start: 20180116, end: 20180621
  2. PONATINIB [Suspect]
     Active Substance: PONATINIB
     Indication: ACUTE LYMPHOCYTIC LEUKAEMIA
     Dosage: 15 MG, QD
     Route: 048
     Dates: start: 20180126, end: 20180730

REACTIONS (1)
  - Ovarian cancer [Fatal]

NARRATIVE: CASE EVENT DATE: 20180730
